FAERS Safety Report 25271989 (Version 1)
Quarter: 2025Q2

REPORT INFORMATION
  Report Type: Other
  Country: ES (occurrence: ES)
  Receive Date: 20250506
  Receipt Date: 20250506
  Transmission Date: 20250716
  Serious: Yes (Other)
  Sender: STRIDES
  Company Number: None

PATIENT
  Age: 76 Year
  Sex: Male

DRUGS (3)
  1. GABAPENTIN [Interacting]
     Active Substance: GABAPENTIN
     Indication: Product used for unknown indication
     Route: 048
     Dates: start: 20220531, end: 20220601
  2. ALFENTANIL [Interacting]
     Active Substance: ALFENTANIL
     Indication: Product used for unknown indication
     Route: 062
     Dates: start: 20220530, end: 20220601
  3. MIDAZOLAM [Interacting]
     Active Substance: MIDAZOLAM
     Indication: Product used for unknown indication
     Route: 042
     Dates: start: 20220530, end: 20220530

REACTIONS (3)
  - Disorientation [Recovered/Resolved]
  - Hypotension [Recovered/Resolved]
  - Depressed level of consciousness [Recovered/Resolved]

NARRATIVE: CASE EVENT DATE: 20220601
